FAERS Safety Report 6864915-7 (Version None)
Quarter: 2010Q3

REPORT INFORMATION
  Report Type: 
  Country: None (occurrence: None)
  Receive Date: 20100720
  Receipt Date: 20100715
  Transmission Date: 20110219
  Serious: Yes (Life-Threatening, Hospitalization)
  Sender: FDA-Public Use
  Company Number: 2010SP025937

PATIENT
  Age: 28 Year
  Sex: Female
  Weight: 80 kg

DRUGS (5)
  1. MIRTAZAPINE [Suspect]
     Indication: BIPOLAR DISORDER
     Dosage: 15 MG;QD, 30 MG;QD
     Dates: start: 20100417, end: 20100427
  2. MIRTAZAPINE [Suspect]
     Indication: BIPOLAR DISORDER
     Dosage: 15 MG;QD, 30 MG;QD
     Dates: start: 20100428, end: 20100501
  3. VALPROATE SODIUM [Concomitant]
  4. SERTRALIN [Concomitant]
  5. RISPERDAL [Concomitant]

REACTIONS (3)
  - BIPOLAR DISORDER [None]
  - CONDITION AGGRAVATED [None]
  - SUICIDE ATTEMPT [None]
